FAERS Safety Report 14655614 (Version 1)
Quarter: 2018Q1

REPORT INFORMATION
  Report Type: Spontaneous
  Country: US (occurrence: US)
  Receive Date: 20180319
  Receipt Date: 20180319
  Transmission Date: 20180509
  Serious: No
  Sender: FDA-Public Use
  Company Number: US-TEVA-2018-US-862033

PATIENT
  Sex: Female

DRUGS (1)
  1. MEPERIDINE HYDROCHLORIDE. [Suspect]
     Active Substance: MEPERIDINE HYDROCHLORIDE
     Indication: PAIN
     Route: 065

REACTIONS (1)
  - Drug screen negative [Unknown]
